FAERS Safety Report 10469399 (Version 1)
Quarter: 2014Q3

REPORT INFORMATION
  Report Type: Spontaneous
  Country: US (occurrence: None)
  Receive Date: 20140919
  Receipt Date: 20140919
  Transmission Date: 20150326
  Serious: Yes (Hospitalization)
  Sender: FDA-Public Use
  Company Number: US-ZYDUS-005000

PATIENT
  Age: 33 Year
  Sex: Male

DRUGS (1)
  1. LEVETIRACETAM (LEVETIRACETAM) [Suspect]
     Active Substance: LEVETIRACETAM

REACTIONS (5)
  - Somnolence [None]
  - Intentional overdose [None]
  - Fatigue [None]
  - Convulsion [None]
  - Condition aggravated [None]
